FAERS Safety Report 21674592 (Version 3)
Quarter: 2023Q1

REPORT INFORMATION
  Report Type: Spontaneous
  Country: IN (occurrence: IN)
  Receive Date: 20221202
  Receipt Date: 20230320
  Transmission Date: 20230417
  Serious: Yes (Other)
  Sender: FDA-Public Use
  Company Number: IN-PFIZER INC-PV202200115101

PATIENT
  Age: 53 Year
  Sex: Female

DRUGS (1)
  1. PALBOCICLIB [Suspect]
     Active Substance: PALBOCICLIB
     Indication: Breast cancer female
     Dosage: 125 MG, OD
     Dates: start: 202209

REACTIONS (9)
  - Oesophageal obstruction [Unknown]
  - Neck mass [Unknown]
  - Feeding disorder [Unknown]
  - Vomiting [Unknown]
  - Neoplasm progression [Unknown]
  - Liver disorder [Unknown]
  - Lung disorder [Unknown]
  - Bone disorder [Unknown]
  - Mouth ulceration [Unknown]
